FAERS Safety Report 20335685 (Version 2)
Quarter: 2022Q1

REPORT INFORMATION
  Report Type: Spontaneous
  Country: BR (occurrence: BR)
  Receive Date: 20220114
  Receipt Date: 20220330
  Transmission Date: 20220423
  Serious: Yes (Hospitalization, Other)
  Sender: FDA-Public Use
  Company Number: BR-NOVARTISPH-NVSC2022BR007445

PATIENT
  Age: 46 Year
  Sex: Female
  Weight: 41.9 kg

DRUGS (1)
  1. HYCAMTIN [Suspect]
     Active Substance: TOPOTECAN HYDROCHLORIDE
     Indication: Ovarian cancer metastatic
     Dosage: 6.12 MG, QW (4 MG/M2, ENDOVENOUS WEEKLY)
     Route: 041
     Dates: start: 20210104, end: 20211117

REACTIONS (5)
  - Duodenal obstruction [Unknown]
  - Nausea [Unknown]
  - Vomiting [Unknown]
  - Neutropenia [Recovered/Resolved]
  - Thrombocytopenia [Recovered/Resolved]

NARRATIVE: CASE EVENT DATE: 20211101
